FAERS Safety Report 7340644 (Version 2)
Quarter: 2013Q1

REPORT INFORMATION
  Report Type: Spontaneous
  Country: DE (occurrence: DE)
  Receive Date: 20100401
  Receipt Date: 20130116
  Transmission Date: 20140127
  Serious: Yes (Hospitalization)
  Sender: FDA-Public Use
  Company Number: DE-ASTRAZENECA-2010SE12938

PATIENT
  Age: 44 Year
  Sex: Female

DRUGS (2)
  1. ASCOTOP [Suspect]
     Indication: MIGRAINE
     Route: 045
  2. NORTRIPTYLIN [Concomitant]

REACTIONS (2)
  - Arterial occlusive disease [Recovered/Resolved]
  - Peripheral ischaemia [Recovered/Resolved]
